FAERS Safety Report 15012899 (Version 1)
Quarter: 2018Q2

REPORT INFORMATION
  Report Type: Report from Study
  Country: US (occurrence: US)
  Receive Date: 20180614
  Receipt Date: 20180614
  Transmission Date: 20180711
  Serious: Yes (Other)
  Sender: FDA-Public Use
  Company Number: US-PFIZER INC-2018163324

PATIENT
  Age: 64 Year
  Sex: Female

DRUGS (2)
  1. IBRANCE [Suspect]
     Active Substance: PALBOCICLIB
     Indication: BREAST CANCER FEMALE
     Dosage: 125 MG, CYCLIC (DAILY, 3 WEEKS ON/1 WEEK OFF/ DAILY FOR 21 DAYS AND OFF 7 DAYS)
     Route: 048
     Dates: start: 20180410, end: 20180508
  2. IBRANCE [Suspect]
     Active Substance: PALBOCICLIB
     Dosage: 125 MG, CYCLIC (DAILY, 21 DAYS AND OFF 7 DAYS)
     Route: 048
     Dates: start: 20180410

REACTIONS (20)
  - Decreased appetite [Recovering/Resolving]
  - Rhinorrhoea [Unknown]
  - Axillary pain [Unknown]
  - Limb discomfort [Unknown]
  - Pain in extremity [Unknown]
  - Condition aggravated [Unknown]
  - Ocular hyperaemia [Unknown]
  - Hypersensitivity [Unknown]
  - Bone marrow failure [Unknown]
  - Throat irritation [Unknown]
  - Nail disorder [Unknown]
  - Stomatitis [Unknown]
  - Back pain [Unknown]
  - Pruritus [Unknown]
  - Fatigue [Not Recovered/Not Resolved]
  - Pain [Unknown]
  - Drug dose omission [Unknown]
  - Arthralgia [Unknown]
  - Headache [Unknown]
  - Initial insomnia [Unknown]

NARRATIVE: CASE EVENT DATE: 2018
